FAERS Safety Report 4270751-0 (Version None)
Quarter: 2004Q1

REPORT INFORMATION
  Report Type: 
  Country: None (occurrence: None)
  Receive Date: 20040113
  Receipt Date: 20031229
  Transmission Date: 20041129
  Serious: Yes (Hospitalization)
  Sender: FDA-Public Use
  Company Number: 187543

PATIENT
  Age: 54 Year
  Sex: Female

DRUGS (7)
  1. AVONEX [Suspect]
     Indication: MULTIPLE SCLEROSIS
     Dosage: 30 MCG QW IM
     Route: 030
     Dates: end: 20030901
  2. SOLU-MEDROL [Concomitant]
  3. NEURONTIN [Concomitant]
  4. KLONOPIN [Concomitant]
  5. BACLOFEN [Concomitant]
  6. CELEXA [Concomitant]
  7. SYNTHROID [Concomitant]

REACTIONS (10)
  - ASTHENIA [None]
  - ATAXIA [None]
  - CEREBELLAR SYNDROME [None]
  - CLONUS [None]
  - FALL [None]
  - GAIT SPASTIC [None]
  - OPHTHALMOPLEGIA [None]
  - PAIN [None]
  - PNEUMONIA [None]
  - TREMOR [None]
